FAERS Safety Report 9430870 (Version 1)
Quarter: 2013Q3

REPORT INFORMATION
  Report Type: Report from Study
  Country: US (occurrence: US)
  Receive Date: 20130730
  Receipt Date: 20130730
  Transmission Date: 20140515
  Serious: No
  Sender: FDA-Public Use
  Company Number: US-ABBOTT-13P-163-1102993-00

PATIENT
  Sex: Male

DRUGS (5)
  1. NIASPAN (COATED) [Suspect]
     Indication: HIGH DENSITY LIPOPROTEIN DECREASED
     Dosage: EVERY EVENING
     Dates: start: 2010, end: 201304
  2. NIASPAN (COATED) [Suspect]
     Dosage: EVERY EVENING
     Dates: start: 201304
  3. ASPIRIN [Concomitant]
     Indication: PRODUCT USED FOR UNKNOWN INDICATION
  4. ATORVASTATIN [Concomitant]
     Indication: PRODUCT USED FOR UNKNOWN INDICATION
  5. METFORMIN [Concomitant]
     Indication: GLUCOSE TOLERANCE IMPAIRED

REACTIONS (2)
  - Flushing [Recovered/Resolved]
  - Generalised erythema [Recovered/Resolved]
